FAERS Safety Report 24369852 (Version 1)
Quarter: 2024Q3

REPORT INFORMATION
  Report Type: Spontaneous
  Country: US (occurrence: US)
  Receive Date: 20240927
  Receipt Date: 20240927
  Transmission Date: 20241016
  Serious: No
  Sender: Haleon PLC
  Company Number: US-MMM-Z0JDY78O

PATIENT
  Age: 77 Year
  Sex: Female

DRUGS (2)
  1. ORLISTAT [Suspect]
     Active Substance: ORLISTAT
     Indication: Constipation
     Dosage: DOSE WAS REPORTED AS 60MG BID OR TID
     Dates: end: 20240921
  2. LEVOTHYROXINE [Concomitant]
     Active Substance: LEVOTHYROXINE\LEVOTHYROXINE SODIUM
     Indication: Hypothyroidism

REACTIONS (2)
  - Drug ineffective [Unknown]
  - Product counterfeit [Unknown]

NARRATIVE: CASE EVENT DATE: 20240910
